FAERS Safety Report 6708238-5 (Version None)
Quarter: 2010Q2

REPORT INFORMATION
  Report Type: 
  Country: None (occurrence: None)
  Receive Date: 20100503
  Receipt Date: 20091111
  Transmission Date: 20101027
  Serious: No
  Sender: FDA-Public Use
  Company Number: US-ASTRAZENECA-2009SE26041

PATIENT
  Age: 41 Year
  Sex: Female
  Weight: 72.6 kg

DRUGS (3)
  1. NEXIUM [Suspect]
     Indication: GASTROOESOPHAGEAL REFLUX DISEASE
     Route: 048
     Dates: start: 20070101
  2. NITROFURANTOIN [Interacting]
     Dates: start: 20091101
  3. VITAMIN D [Concomitant]

REACTIONS (4)
  - DRUG INTERACTION [None]
  - DYSPEPSIA [None]
  - VITAMIN B12 DECREASED [None]
  - VITAMIN D DECREASED [None]
